FAERS Safety Report 8984312 (Version 1)
Quarter: 2012Q4

REPORT INFORMATION
  Report Type: 
  Country: HK (occurrence: HK)
  Receive Date: 20121226
  Receipt Date: 20121226
  Transmission Date: 20130627
  Serious: Yes (Hospitalization, Other)
  Sender: FDA-Public Use
  Company Number: PHHY2012HK116303

PATIENT
  Age: 55 Year
  Sex: Male

DRUGS (1)
  1. CARBAMAZEPINE [Suspect]
     Indication: BIPOLAR DISORDER

REACTIONS (10)
  - Mania [Unknown]
  - Mental disorder [Unknown]
  - Flight of ideas [Unknown]
  - Poor quality sleep [Unknown]
  - Irritability [Unknown]
  - Tardive dyskinesia [Recovered/Resolved]
  - Dyskinesia [Unknown]
  - Social avoidant behaviour [Unknown]
  - Oropharyngeal pain [Unknown]
  - Headache [Unknown]
